FAERS Safety Report 4694437-3 (Version None)
Quarter: 2005Q2

REPORT INFORMATION
  Report Type: 
  Country: None (occurrence: None)
  Receive Date: 20050620
  Receipt Date: 20050608
  Transmission Date: 20051028
  Serious: Yes (Hospitalization)
  Sender: FDA-Public Use
  Company Number: AU-JNJFOC-20050603757

PATIENT
  Sex: Female

DRUGS (13)
  1. TRAMAL SR [Suspect]
     Indication: DRUG USE FOR UNKNOWN INDICATION
     Route: 049
  2. PARACETAMOL, CODEINE PHOSPHATE [Suspect]
     Route: 065
  3. PARACETAMOL, CODEINE PHOSPHATE [Suspect]
     Indication: DRUG USE FOR UNKNOWN INDICATION
     Route: 065
  4. HYDROCHLOROTHIAZIDE, IRBESARTAN [Concomitant]
     Route: 049
  5. DIAZEPAM [Concomitant]
     Route: 049
  6. PARACETAMOL [Concomitant]
     Route: 065
  7. DOCUSATE SODIUM, SENNOSIDES A AND B [Concomitant]
     Route: 065
  8. CLOPIDOGREL HYDROGEN SULFATE [Concomitant]
     Route: 065
  9. BACLOFEN [Concomitant]
     Route: 065
  10. VERAPAMIL HYDROCHLORIDE [Concomitant]
     Route: 065
  11. ALENDRONATE SODIUM [Concomitant]
     Route: 065
  12. FRUSEMIDE [Concomitant]
     Route: 049
  13. DICLOFENAC SODIUM [Concomitant]
     Route: 054

REACTIONS (11)
  - ASTHENOPIA [None]
  - BINOCULAR EYE MOVEMENT DISORDER [None]
  - LIVEDO RETICULARIS [None]
  - LOSS OF CONSCIOUSNESS [None]
  - MOTOR DYSFUNCTION [None]
  - MUSCLE RIGIDITY [None]
  - RESTLESS LEGS SYNDROME [None]
  - SOMNOLENCE [None]
  - TREMOR [None]
  - UNEVALUABLE EVENT [None]
  - UNRESPONSIVE TO VERBAL STIMULI [None]
